FAERS Safety Report 6756893-6 (Version None)
Quarter: 2010Q2

REPORT INFORMATION
  Report Type: 
  Country: None (occurrence: None)
  Receive Date: 20100604
  Receipt Date: 20100526
  Transmission Date: 20101027
  Serious: Yes (Hospitalization, Other)
  Sender: FDA-Public Use
  Company Number: DE-ABBOTT-10P-062-0629480-00

PATIENT
  Sex: Male
  Weight: 58.9 kg

DRUGS (11)
  1. HUMIRA [Suspect]
     Indication: RHEUMATOID ARTHRITIS
     Route: 058
     Dates: start: 20071002, end: 20100201
  2. METAMIZOL [Suspect]
     Indication: PAIN
  3. METOPROLOL TARTRATE [Concomitant]
     Indication: HYPERTENSION
     Route: 048
     Dates: start: 19900101
  4. ACETYLSALICYLIC ACID [Concomitant]
     Indication: PERIPHERAL ARTERIAL OCCLUSIVE DISEASE
     Dosage: 100MG DAILY
     Dates: start: 20100401
  5. PANTOPRAZOLE [Concomitant]
     Indication: GASTROINTESTINAL MUCOSAL DISORDER
     Dosage: 40MG DAILY
  6. PANTOPRAZOLE [Concomitant]
     Indication: PROPHYLAXIS
  7. PREDNISOLONE [Concomitant]
     Indication: RHEUMATOID ARTHRITIS
     Dates: start: 19900101
  8. VIT D [Concomitant]
     Indication: OSTEOPOROSIS PROPHYLAXIS
  9. TRAMADOL HCL [Concomitant]
     Indication: PAIN
     Dosage: 50MG DAILY
  10. FORMOTEROL [Concomitant]
     Indication: DRUG USE FOR UNKNOWN INDICATION
  11. LEVOTHYROXINE SODIUM [Concomitant]
     Indication: DRUG USE FOR UNKNOWN INDICATION

REACTIONS (13)
  - CELLULITIS [None]
  - CONTUSION [None]
  - CYST [None]
  - FOOT DEFORMITY [None]
  - INFECTED SKIN ULCER [None]
  - INFECTION [None]
  - INFLAMMATION [None]
  - LEUKOCYTOSIS [None]
  - OSTEOARTHRITIS [None]
  - SKIN ULCER [None]
  - STAPHYLOCOCCAL INFECTION [None]
  - VASCULAR CALCIFICATION [None]
  - VASCULAR STENOSIS [None]
